FAERS Safety Report 7456143-1 (Version None)
Quarter: 2011Q2

REPORT INFORMATION
  Report Type: 
  Country: None (occurrence: None)
  Receive Date: 20110503
  Receipt Date: 20090416
  Transmission Date: 20111010
  Serious: Yes (Hospitalization, Other)
  Sender: FDA-Public Use
  Company Number: US-BAYER-200923733NA

PATIENT
  Age: 77 Year
  Sex: Male
  Weight: 74.83 kg

DRUGS (15)
  1. AMIODARONE [Concomitant]
     Dosage: 150 MG, UNK
     Dates: start: 20040903
  2. NITROGLYCERIN [Concomitant]
     Dosage: VARIABLE DRIP RATE
     Dates: start: 20040903
  3. VANCOMYCIN [Concomitant]
     Dosage: 2 G, UNK
     Route: 042
     Dates: start: 20040903
  4. TRASYLOL [Suspect]
     Dosage: 50 ML/HR INFUSION
     Route: 042
     Dates: start: 20040903, end: 20040903
  5. ZOCOR [Concomitant]
     Dosage: 40 MG, UNK
     Route: 048
  6. ACETYLSALICYLIC ACID SRT [Concomitant]
     Dosage: 81 MG, UNK
     Route: 048
  7. LEVOPHED [Concomitant]
     Dosage: VARIABLE DRIP RATE
     Dates: start: 20040903
  8. TRASYLOL [Suspect]
     Indication: AORTIC VALVE REPLACEMENT
     Dosage: 200 ML LOADING DOSE
     Route: 042
     Dates: start: 20040903, end: 20040903
  9. EPINEPHRINE [Concomitant]
     Dosage: 0.2 MCG/KG/MIN
     Dates: start: 20040903
  10. MILRINONE [Concomitant]
     Dosage: 3.5
     Dates: start: 20040903
  11. TRASYLOL [Suspect]
     Indication: CORONARY ARTERY BYPASS
     Dosage: 1 ML, INITIAL DOSE
     Route: 042
     Dates: start: 20040903, end: 20040903
  12. VALSARTAN [Concomitant]
     Dosage: 80 MG, UNK
     Route: 048
  13. METOPROLOL SUCCINATE [Concomitant]
     Dosage: 12.5 MG, UNK
     Route: 048
     Dates: start: 20040902
  14. INSULIN [Concomitant]
     Dosage: VARIABLE DRIP RATE
     Dates: start: 20040903
  15. HEPARIN [Concomitant]
     Dosage: 32000 U, UNK
     Dates: start: 20040903

REACTIONS (13)
  - FEAR [None]
  - ANXIETY [None]
  - RENAL ATROPHY [None]
  - ANHEDONIA [None]
  - INJURY [None]
  - PAIN [None]
  - MULTI-ORGAN FAILURE [None]
  - RENAL FAILURE [None]
  - RENAL IMPAIRMENT [None]
  - RENAL INJURY [None]
  - EMOTIONAL DISTRESS [None]
  - STRESS [None]
  - UNEVALUABLE EVENT [None]
